FAERS Safety Report 5441603-5 (Version None)
Quarter: 2007Q3

REPORT INFORMATION
  Report Type: 
  Country: None (occurrence: None)
  Receive Date: 20070829
  Receipt Date: 20070821
  Transmission Date: 20080115
  Serious: Yes (Other)
  Sender: FDA-Public Use
  Company Number: 2007SP017059

PATIENT
  Age: 45 Year
  Sex: Male
  Weight: 85 kg

DRUGS (1)
  1. ELOVENT TWISTHALER (MOMETASONE FUROATE) [Suspect]
     Indication: ASTHMA
     Dosage: 200 MCG; QD; INH
     Route: 055
     Dates: start: 20070301, end: 20070701

REACTIONS (3)
  - DYSPNOEA [None]
  - GENERALISED OEDEMA [None]
  - HEADACHE [None]
